FAERS Safety Report 5179478-4 (Version None)
Quarter: 2006Q4

REPORT INFORMATION
  Report Type: 
  Country: None (occurrence: None)
  Receive Date: 20061211
  Receipt Date: 20061127
  Transmission Date: 20070319
  Serious: Yes (Death)
  Sender: FDA-Public Use
  Company Number: GBWYE659027NOV06

PATIENT
  Age: 35 Year
  Sex: Male

DRUGS (1)
  1. EFFEXOR [Suspect]
     Dosage: 75 MG FREQUENCY
     Dates: start: 20040308

REACTIONS (8)
  - AGITATION [None]
  - COMPLETED SUICIDE [None]
  - INSOMNIA [None]
  - NEGATIVE THOUGHTS [None]
  - PANIC ATTACK [None]
  - PSYCHIATRIC SYMPTOM [None]
  - RESTLESSNESS [None]
  - TACHYPHRENIA [None]
